FAERS Safety Report 7831044-5 (Version None)
Quarter: 2011Q4

REPORT INFORMATION
  Report Type: 
  Country: None (occurrence: None)
  Receive Date: 20111021
  Receipt Date: 20111017
  Transmission Date: 20120403
  Serious: Yes (Hospitalization, Other)
  Sender: FDA-Public Use
  Company Number: PHHY2011BR83133

PATIENT
  Sex: Female

DRUGS (4)
  1. HYDRALAZINE HCL [Suspect]
     Dosage: 25 MG, UNK
  2. EXFORGE HCT [Suspect]
     Dosage: UNK UKN, UNK
  3. COMTAN [Concomitant]
     Indication: PARKINSON'S DISEASE
     Dosage: 200 MG, BID
     Route: 048
  4. PROLOPA [Concomitant]
     Dosage: 2 DF, HALF A DAY

REACTIONS (2)
  - HAEMORRHAGE [None]
  - BLOOD PRESSURE INADEQUATELY CONTROLLED [None]
